FAERS Safety Report 17676424 (Version 2)
Quarter: 2020Q2

REPORT INFORMATION
  Report Type: Spontaneous
  Country: FR (occurrence: FR)
  Receive Date: 20200416
  Receipt Date: 20200429
  Transmission Date: 20200714
  Serious: Yes (Hospitalization, Other)
  Sender: FDA-Public Use
  Company Number: FR-SA-2020SA097090

PATIENT
  Age: 60 Year
  Sex: Female

DRUGS (5)
  1. ETHAMBUTOL [Suspect]
     Active Substance: ETHAMBUTOL HYDROCHLORIDE
     Dosage: 1500 MG
     Route: 048
     Dates: start: 20191030, end: 20200319
  2. RIFAMPICIN [Suspect]
     Active Substance: RIFAMPIN
     Indication: TUBERCULOSIS
     Dosage: UNK
     Route: 048
     Dates: start: 20191024, end: 2019
  3. ETHAMBUTOL [Suspect]
     Active Substance: ETHAMBUTOL HYDROCHLORIDE
     Indication: TUBERCULOSIS
     Dosage: UNK
     Route: 048
     Dates: start: 20191024, end: 2019
  4. RIFAMPICIN [Suspect]
     Active Substance: RIFAMPIN
     Dosage: 900 MG
     Route: 048
     Dates: start: 20191102, end: 20200326
  5. LEVOFLOXACIN. [Suspect]
     Active Substance: LEVOFLOXACIN
     Indication: TUBERCULOSIS
     Dosage: 1 G
     Route: 048
     Dates: start: 20191031, end: 20200326

REACTIONS (2)
  - Optic neuropathy [Not Recovered/Not Resolved]
  - Neuropathy peripheral [Recovering/Resolving]

NARRATIVE: CASE EVENT DATE: 202003
